FAERS Safety Report 24285250 (Version 2)
Quarter: 2024Q3

REPORT INFORMATION
  Report Type: Spontaneous
  Country: CH (occurrence: CH)
  Receive Date: 20240905
  Receipt Date: 20240924
  Transmission Date: 20241017
  Serious: Yes (Life-Threatening, Hospitalization, Disabling)
  Sender: RANBAXY
  Company Number: CH-ALMIRALL-CH-2024-2165

PATIENT
  Age: 60 Year
  Sex: Male

DRUGS (2)
  1. TILDRAKIZUMAB [Suspect]
     Active Substance: TILDRAKIZUMAB
     Indication: Product used for unknown indication
     Dosage: UNKNOWN
     Route: 065
     Dates: start: 202401, end: 202402
  2. TILDRAKIZUMAB [Suspect]
     Active Substance: TILDRAKIZUMAB
     Dosage: UNKNOWN
     Route: 065

REACTIONS (1)
  - Thrombocytopenia [Recovered/Resolved]
